FAERS Safety Report 5997489-3 (Version None)
Quarter: 2008Q4

REPORT INFORMATION
  Report Type: 
  Country: None (occurrence: None)
  Receive Date: 20081212
  Receipt Date: 20081113
  Transmission Date: 20090506
  Serious: Yes (Hospitalization)
  Sender: FDA-Public Use
  Company Number: US-ABBOTT-08P-163-0487530-00

PATIENT
  Sex: Female
  Weight: 50.848 kg

DRUGS (3)
  1. HUMIRA [Suspect]
     Indication: CROHN'S DISEASE
     Dosage: LOADING DOSE
     Route: 058
     Dates: start: 20080926, end: 20080926
  2. HUMIRA [Suspect]
     Route: 058
     Dates: start: 20081010, end: 20081010
  3. ZOLPIDEM TARTRATE [Concomitant]
     Indication: INSOMNIA

REACTIONS (4)
  - ADVERSE DRUG REACTION [None]
  - DIARRHOEA [None]
  - INFLUENZA LIKE ILLNESS [None]
  - WEIGHT DECREASED [None]
